FAERS Safety Report 22149521 (Version 1)
Quarter: 2023Q1

REPORT INFORMATION
  Report Type: Other
  Country: GB (occurrence: GB)
  Receive Date: 20230329
  Receipt Date: 20230329
  Transmission Date: 20230417
  Serious: Yes (Death, Life-Threatening, Hospitalization, Other)
  Sender: FDA-Public Use
  Company Number: GB-ROCHE-2677215

PATIENT

DRUGS (107)
  1. AMLODIPINE [Suspect]
     Active Substance: AMLODIPINE BESYLATE
     Indication: Hypertension
     Dosage: UNK
     Route: 065
  2. AMLODIPINE [Suspect]
     Active Substance: AMLODIPINE BESYLATE
     Dosage: UNK UNK, QD
     Route: 065
  3. AMLODIPINE [Suspect]
     Active Substance: AMLODIPINE BESYLATE
     Dosage: UNK
  4. AMLODIPINE [Suspect]
     Active Substance: AMLODIPINE BESYLATE
     Dosage: 1 MILLIGRAM, QD
     Route: 065
  5. AMLODIPINE [Suspect]
     Active Substance: AMLODIPINE BESYLATE
     Dosage: 1 DOSAGE FORM, QD
     Route: 065
  6. AMLODIPINE [Suspect]
     Active Substance: AMLODIPINE BESYLATE
     Dosage: 1 DOSAGE FORM, QD
     Route: 065
  7. AMLODIPINE [Suspect]
     Active Substance: AMLODIPINE BESYLATE
     Dosage: 1 DOSAGE FORM, QD
     Route: 065
  8. AMLODIPINE [Suspect]
     Active Substance: AMLODIPINE BESYLATE
     Dosage: 1 DOSAGE FORM, QD
     Route: 065
  9. AMLODIPINE [Suspect]
     Active Substance: AMLODIPINE BESYLATE
     Dosage: 1 DOSAGE FORM, QD
     Route: 065
  10. AMLODIPINE [Suspect]
     Active Substance: AMLODIPINE BESYLATE
     Dosage: 1 DOSAGE FORM, QD
     Route: 065
  11. AMLODIPINE [Suspect]
     Active Substance: AMLODIPINE BESYLATE
     Dosage: 1 DOSAGE FORM, QD
     Route: 065
  12. LINEZOLID [Suspect]
     Active Substance: LINEZOLID
     Indication: Neutropenic sepsis
     Dosage: UNK
     Route: 065
     Dates: start: 20200830
  13. LINEZOLID [Suspect]
     Active Substance: LINEZOLID
     Dosage: UNK
     Route: 065
     Dates: start: 20200830
  14. MORPHINE SULFATE [Suspect]
     Active Substance: MORPHINE SULFATE
     Indication: Pain
     Dosage: UNK UNK, QD
     Route: 065
     Dates: start: 20200727
  15. MORPHINE SULFATE [Suspect]
     Active Substance: MORPHINE SULFATE
     Indication: Prophylaxis
     Dosage: UNK, QD
     Route: 065
     Dates: start: 20200731
  16. MORPHINE SULFATE [Suspect]
     Active Substance: MORPHINE SULFATE
     Dosage: 02 DOSAGE FORM, QD
     Route: 065
     Dates: start: 20200731
  17. MORPHINE SULFATE [Suspect]
     Active Substance: MORPHINE SULFATE
     Dosage: UNK
     Route: 065
     Dates: start: 20200825
  18. MORPHINE SULFATE [Suspect]
     Active Substance: MORPHINE SULFATE
     Dosage: 1 DOSAGE FORM, QD
     Route: 065
     Dates: start: 20200731
  19. MORPHINE SULFATE [Suspect]
     Active Substance: MORPHINE SULFATE
     Dosage: UNK
     Route: 065
     Dates: start: 20200828
  20. MORPHINE SULFATE [Suspect]
     Active Substance: MORPHINE SULFATE
     Dosage: UNK, QD, 0.5 DAILY
     Route: 065
     Dates: start: 20200731
  21. VORICONAZOLE [Suspect]
     Active Substance: VORICONAZOLE
     Indication: Neutropenic sepsis
     Dosage: 1 DOSAGE FORM, QD
     Route: 065
     Dates: start: 20200830
  22. VORICONAZOLE [Suspect]
     Active Substance: VORICONAZOLE
     Dosage: UNK UNK, QD
     Route: 065
     Dates: start: 20200830
  23. ALBUTEROL SULFATE [Suspect]
     Active Substance: ALBUTEROL SULFATE
     Indication: Prophylaxis
     Dosage: UNK
     Route: 065
  24. LANSOPRAZOLE [Suspect]
     Active Substance: LANSOPRAZOLE
     Indication: Prophylaxis
     Dosage: UNK UNK, QD, ONCE PER DAY
     Route: 065
     Dates: start: 20170101
  25. LANSOPRAZOLE [Suspect]
     Active Substance: LANSOPRAZOLE
     Dosage: 1 MILLIGRAM, QD
     Route: 065
     Dates: start: 20170101
  26. ZOLMITRIPTAN [Suspect]
     Active Substance: ZOLMITRIPTAN
     Indication: Pain
     Dosage: 1 DOSAGE FORM, QD
     Route: 065
  27. TIOTROPIUM [Suspect]
     Active Substance: TIOTROPIUM
     Indication: Chronic obstructive pulmonary disease
     Dosage: UNK, QD
     Route: 065
  28. SPIRIVA [Suspect]
     Active Substance: TIOTROPIUM BROMIDE MONOHYDRATE
     Indication: Chronic obstructive pulmonary disease
     Dosage: 1 DOSAGE FORM, QD
     Route: 065
  29. SPIRIVA [Suspect]
     Active Substance: TIOTROPIUM BROMIDE MONOHYDRATE
     Dosage: UNK, QD, ONCE PER DAY
     Route: 065
  30. SPIRIVA [Suspect]
     Active Substance: TIOTROPIUM BROMIDE MONOHYDRATE
     Dosage: UNK
     Route: 065
  31. CIPROFLOXACIN [Suspect]
     Active Substance: CIPROFLOXACIN
     Indication: Prophylaxis
     Dosage: UNK, QD,(0.5 DAY)
     Route: 065
     Dates: start: 20200827
  32. CIPROFLOXACIN [Suspect]
     Active Substance: CIPROFLOXACIN
     Dosage: UNK, BID (2 PER DAY (Q12 H))
     Route: 065
     Dates: start: 20200827
  33. CIPROFLOXACIN [Suspect]
     Active Substance: CIPROFLOXACIN
     Dosage: 2 DOSAGE FORM, QD
     Route: 065
     Dates: start: 20200827
  34. CIPROFLOXACIN [Suspect]
     Active Substance: CIPROFLOXACIN
     Dosage: UNK
     Route: 065
  35. VENLAFAXINE [Suspect]
     Active Substance: VENLAFAXINE HYDROCHLORIDE
     Indication: Depression
     Dosage: UNK UNK, QD
     Route: 065
  36. VENLAFAXINE [Suspect]
     Active Substance: VENLAFAXINE HYDROCHLORIDE
     Dosage: UNK
     Route: 065
  37. VENLAFAXINE [Suspect]
     Active Substance: VENLAFAXINE HYDROCHLORIDE
     Dosage: UNK, QD, 0.5 DAILY
     Route: 065
     Dates: start: 20200820
  38. VENLAFAXINE [Suspect]
     Active Substance: VENLAFAXINE HYDROCHLORIDE
     Dosage: 1 DOSAGE FORM, BID
     Route: 065
     Dates: start: 20200820
  39. VENLAFAXINE [Suspect]
     Active Substance: VENLAFAXINE HYDROCHLORIDE
     Dosage: UNK UNK, QD
     Route: 065
  40. ZOPICLONE [Suspect]
     Active Substance: ZOPICLONE
     Indication: Prophylaxis
     Dosage: 1 DOSAGE FORM, QD
     Route: 065
     Dates: start: 20200731
  41. ZOPICLONE [Suspect]
     Active Substance: ZOPICLONE
     Dosage: UNK UNK, QD
     Route: 065
     Dates: start: 20200731
  42. AMOXICILLIN [Suspect]
     Active Substance: AMOXICILLIN
     Indication: Product used for unknown indication
     Dosage: UNK UNK, QD
     Route: 065
     Dates: start: 20200810, end: 20200816
  43. AMOXICILLIN [Suspect]
     Active Substance: AMOXICILLIN
     Dosage: 1 DOSAGE FORM, QD
     Route: 065
     Dates: start: 20200810, end: 20200816
  44. AMOXICILLIN [Suspect]
     Active Substance: AMOXICILLIN
     Dosage: UNK UNK, QD (UNK, FOUR TIMES/DAY )
     Route: 065
     Dates: start: 20200810, end: 20200816
  45. ATEZOLIZUMAB [Suspect]
     Active Substance: ATEZOLIZUMAB
     Indication: Non-small cell lung cancer
     Dosage: 1200 MILLIGRAM EVERY 3 WEEKS RECENT DOSE ON 19-AUG-20
     Route: 042
     Dates: start: 20200729
  46. ATEZOLIZUMAB [Suspect]
     Active Substance: ATEZOLIZUMAB
     Indication: Transitional cell carcinoma
     Dosage: UNK (SUBLINGUAL TABLET)
     Route: 065
  47. ATEZOLIZUMAB [Suspect]
     Active Substance: ATEZOLIZUMAB
     Indication: Small cell lung cancer
     Dosage: 1200 MILLIGRAM EVERY 3 WEEKS
     Route: 042
     Dates: start: 20200819
  48. ATEZOLIZUMAB [Suspect]
     Active Substance: ATEZOLIZUMAB
     Dosage: UNK (SOLUTION FOR INFUSION)
     Route: 065
  49. ATEZOLIZUMAB [Suspect]
     Active Substance: ATEZOLIZUMAB
     Dosage: 1200 MILLIGRAM TIW ( SUBLINGUAL TABLET)
     Route: 042
     Dates: start: 20200819
  50. ATEZOLIZUMAB [Suspect]
     Active Substance: ATEZOLIZUMAB
     Dosage: 1200 MILLIGRAM, WEEKLY MOST RECENT DOSE PRIOR (NAUSEA) ONSET ON 19/AUG/202
     Route: 041
     Dates: start: 20200729
  51. MORPHINE SULFATE [Suspect]
     Active Substance: MORPHINE SULFATE
     Indication: Pain
     Dosage: UNK UNK, QD, ONCE PER DAY
     Route: 065
     Dates: start: 20200727
  52. MORPHINE SULFATE [Suspect]
     Active Substance: MORPHINE SULFATE
     Dosage: 1 MG, QD
     Route: 065
     Dates: start: 20200727
  53. MORPHINE SULFATE [Suspect]
     Active Substance: MORPHINE SULFATE
     Dosage: UNK UNK, QD, ONCE PER DAY
     Route: 065
     Dates: start: 20200731
  54. MORPHINE SULFATE [Suspect]
     Active Substance: MORPHINE SULFATE
     Dosage: UNK UNK, QD, ONCE PER DAY
     Route: 065
     Dates: start: 20200727
  55. MORPHINE SULFATE [Suspect]
     Active Substance: MORPHINE SULFATE
     Dosage: UNK
     Route: 065
     Dates: start: 20200825
  56. ACETAMINOPHEN\CODEINE PHOSPHATE [Suspect]
     Active Substance: ACETAMINOPHEN\CODEINE PHOSPHATE
     Indication: Headache
     Dosage: UNK UNK, QD, ONCE PER DAY
     Route: 065
  57. ACETAMINOPHEN\CODEINE PHOSPHATE [Suspect]
     Active Substance: ACETAMINOPHEN\CODEINE PHOSPHATE
     Indication: Pain
     Dosage: 0.5 MILLIGRAM, QD
     Route: 065
  58. ACETAMINOPHEN\CODEINE PHOSPHATE [Suspect]
     Active Substance: ACETAMINOPHEN\CODEINE PHOSPHATE
     Dosage: 2 PER DAY (Q12 H)
     Route: 065
  59. ACETAMINOPHEN\CODEINE PHOSPHATE [Suspect]
     Active Substance: ACETAMINOPHEN\CODEINE PHOSPHATE
     Dosage: 1 DOSAGE FORM, QD
     Route: 065
  60. ACETAMINOPHEN\CODEINE PHOSPHATE [Suspect]
     Active Substance: ACETAMINOPHEN\CODEINE PHOSPHATE
     Dosage: UNK, QD, 0.5 DAILY
     Route: 065
  61. CARBOPLATIN [Suspect]
     Active Substance: CARBOPLATIN
     Indication: Non-small cell lung cancer
     Dosage: UNK MG
     Route: 065
  62. CARBOPLATIN [Suspect]
     Active Substance: CARBOPLATIN
     Indication: Small cell lung cancer extensive stage
     Dosage: 450 MG, QD ENDOTRACHEOPULMONARY INSTILLATION, POWDER FOR SOLUTION
     Dates: start: 20200729
  63. CLOPIDOGREL [Suspect]
     Active Substance: CLOPIDOGREL BISULFATE
     Indication: Hypertension
     Dosage: 1 DOSAGE FORM, QD
     Route: 065
     Dates: start: 20200827
  64. CLOPIDOGREL [Suspect]
     Active Substance: CLOPIDOGREL BISULFATE
     Dosage: UNK UNK, QD
     Route: 065
  65. CYCLIZINE [Suspect]
     Active Substance: CYCLIZINE
     Indication: Vomiting
     Dosage: 4 MILLIGRAM, QD
     Route: 065
  66. CYCLIZINE [Suspect]
     Active Substance: CYCLIZINE
     Indication: Neutropenic sepsis
     Dosage: UNK
     Route: 065
  67. CYCLIZINE [Suspect]
     Active Substance: CYCLIZINE
     Dosage: 1 PER 6 HOUR
     Route: 065
  68. CYCLIZINE [Suspect]
     Active Substance: CYCLIZINE
     Dosage: UNK, QD,1 IN 0.25 DAY
     Route: 065
  69. CYCLIZINE [Suspect]
     Active Substance: CYCLIZINE
     Dosage: UNK, BID (TIMES A DAY )
     Route: 065
  70. CYCLIZINE [Suspect]
     Active Substance: CYCLIZINE
     Dosage: 1 DOSAGE FORM, QD
     Route: 065
  71. CYCLIZINE [Suspect]
     Active Substance: CYCLIZINE
     Dosage: UNK, 0.25
     Route: 065
  72. DEXAMETHASONE [Suspect]
     Active Substance: DEXAMETHASONE
     Indication: Dysphagia
     Dosage: UNK UNK, QD
     Route: 065
     Dates: start: 20200826
  73. DEXAMETHASONE [Suspect]
     Active Substance: DEXAMETHASONE
     Dosage: 1 MILLIGRAM, QD
     Route: 065
     Dates: start: 20200826
  74. BENZYDAMINE [Suspect]
     Active Substance: BENZYDAMINE
     Indication: Prophylaxis
     Dosage: UNK
     Route: 065
     Dates: start: 20200819
  75. ETOPOSIDE [Suspect]
     Active Substance: ETOPOSIDE
     Indication: Non-small cell lung cancer
     Dosage: UNK
     Route: 065
  76. ETOPOSIDE [Suspect]
     Active Substance: ETOPOSIDE
     Indication: Small cell lung cancer extensive stage
     Dosage: 148 MG
     Route: 065
     Dates: start: 20200729
  77. ETOPOSIDE [Suspect]
     Active Substance: ETOPOSIDE
     Dosage: 600 MG, QD
     Route: 048
     Dates: start: 20200730
  78. ETOPOSIDE [Suspect]
     Active Substance: ETOPOSIDE
     Dosage: 148 MG QD
     Route: 065
     Dates: start: 20200729
  79. ETOPOSIDE [Suspect]
     Active Substance: ETOPOSIDE
     Dosage: 148 MG
     Route: 065
     Dates: start: 20200729
  80. FLUCONAZOLE [Suspect]
     Active Substance: FLUCONAZOLE
     Indication: Candida infection
     Dosage: UNK UNK, QD
     Route: 065
  81. FLUCONAZOLE [Suspect]
     Active Substance: FLUCONAZOLE
     Dosage: UNK UNK,
     Route: 065
  82. FORMOTEROL [Suspect]
     Active Substance: FORMOTEROL
     Indication: Hypertension
     Dosage: 0.5 MILLIGRAM, QD
     Route: 065
     Dates: start: 20200301
  83. FORMOTEROL [Suspect]
     Active Substance: FORMOTEROL
     Dosage: 2 PER DAY (Q12H)
     Route: 065
     Dates: start: 20200301
  84. FORMOTEROL [Suspect]
     Active Substance: FORMOTEROL
     Dosage: 1 DOSAGE FORM, BID
     Route: 065
     Dates: start: 20200301
  85. FORMOTEROL [Suspect]
     Active Substance: FORMOTEROL
     Dosage: 2 MILLIGRAM, QD
     Route: 065
     Dates: start: 20200301
  86. LACTULOSE [Suspect]
     Active Substance: LACTULOSE
     Indication: Prophylaxis
     Dosage: UNK, QD, 0.5 DAILY
     Route: 065
  87. LACTULOSE [Suspect]
     Active Substance: LACTULOSE
     Dosage: UNK, QD, ONCE PER DAY
     Route: 065
  88. LACTULOSE [Suspect]
     Active Substance: LACTULOSE
     Dosage: 2 DOSAGE FORM
  89. LACTULOSE [Suspect]
     Active Substance: LACTULOSE
     Dosage: 1 DOSAGE FORM, QD
  90. LACTULOSE [Suspect]
     Active Substance: LACTULOSE
     Dosage: UNK, BID, Q12H, 2 TIMES PER DAY
     Route: 065
  91. LACTULOSE [Suspect]
     Active Substance: LACTULOSE
     Dosage: UNK, QD, ONCE PER DAY
     Route: 065
  92. LACTULOSE [Suspect]
     Active Substance: LACTULOSE
     Dosage: UNK, BID, 2 TIMES PER DAY
     Route: 065
  93. LACTULOSE [Suspect]
     Active Substance: LACTULOSE
     Dosage: UNK, BID, 2 TIMES PER DAY
     Route: 065
  94. LACTULOSE [Suspect]
     Active Substance: LACTULOSE
     Dosage: UNK, QD, ONCE PER DAY
     Route: 065
  95. LACTULOSE [Suspect]
     Active Substance: LACTULOSE
     Dosage: UNK, BID, 2 TIMES PER DAY
     Route: 065
  96. MAGNESIUM [Concomitant]
     Active Substance: MAGNESIUM
     Indication: Product used for unknown indication
     Dosage: UNK
     Route: 065
     Dates: start: 20200819, end: 20200819
  97. METOCLOPRAMIDE [Concomitant]
     Active Substance: METOCLOPRAMIDE
     Indication: Vomiting
     Dosage: 1, QD, ONCE PER DAY
     Route: 065
  98. METOCLOPRAMIDE [Concomitant]
     Active Substance: METOCLOPRAMIDE
     Dosage: 1 DOSAGE FORM, QID
     Route: 065
     Dates: start: 20200819, end: 20200819
  99. UNSPECIFIED INGREDIENT [Concomitant]
     Active Substance: UNSPECIFIED INGREDIENT
     Indication: Product used for unknown indication
     Dosage: UNK UNK, QD,ONCE PER DAY
     Route: 065
     Dates: start: 20200825, end: 20200825
  100. UNSPECIFIED INGREDIENT [Concomitant]
     Active Substance: UNSPECIFIED INGREDIENT
     Dosage: 4 DOSAGE FORM, QD
     Route: 065
     Dates: start: 20200825, end: 20200825
  101. UNSPECIFIED INGREDIENT [Concomitant]
     Active Substance: UNSPECIFIED INGREDIENT
     Dosage: UNK
     Route: 065
  102. POTASSIUM BICARBONATE\POTASSIUM CHLORIDE [Concomitant]
     Active Substance: POTASSIUM BICARBONATE\POTASSIUM CHLORIDE
     Indication: Prophylaxis
     Dosage: 0.5, QD
     Route: 065
     Dates: start: 20200819
  103. POTASSIUM BICARBONATE\POTASSIUM CHLORIDE [Concomitant]
     Active Substance: POTASSIUM BICARBONATE\POTASSIUM CHLORIDE
     Dosage: UNK
     Route: 065
     Dates: start: 20200828, end: 20200901
  104. POTASSIUM BICARBONATE\POTASSIUM CHLORIDE [Concomitant]
     Active Substance: POTASSIUM BICARBONATE\POTASSIUM CHLORIDE
     Dosage: UNK
     Route: 065
     Dates: start: 20200828
  105. POTASSIUM BICARBONATE\POTASSIUM CHLORIDE [Concomitant]
     Active Substance: POTASSIUM BICARBONATE\POTASSIUM CHLORIDE
     Dosage: UNK UNK, BID (TWO TIMES A DAY )
     Route: 065
     Dates: start: 20200819
  106. ONDANSETRON [Concomitant]
     Active Substance: ONDANSETRON
     Indication: Product used for unknown indication
     Dosage: 8 MG
     Route: 065
     Dates: start: 20200729, end: 20200729
  107. PHOSPHORIC ACID [Concomitant]
     Active Substance: PHOSPHORIC ACID
     Indication: Product used for unknown indication
     Dosage: UNK
     Route: 065

REACTIONS (26)
  - Death [Fatal]
  - Asthenia [Fatal]
  - Nervous system disorder [Fatal]
  - Gait disturbance [Fatal]
  - Hypomagnesaemia [Fatal]
  - Balance disorder [Fatal]
  - Product use in unapproved indication [Fatal]
  - Hypomagnesaemia [Fatal]
  - Mucosal inflammation [Fatal]
  - Skin candida [Fatal]
  - Vomiting [Fatal]
  - Productive cough [Fatal]
  - Dyspnoea [Fatal]
  - Headache [Fatal]
  - Hypokalaemia [Fatal]
  - Neutropenic sepsis [Fatal]
  - Dysphagia [Fatal]
  - Nausea [Fatal]
  - Mouth ulceration [Fatal]
  - Constipation [Fatal]
  - Diarrhoea [Fatal]
  - Decreased appetite [Fatal]
  - Neutrophil count decreased [Fatal]
  - Dehydration [Fatal]
  - Anaemia [Fatal]
  - Depression [Fatal]

NARRATIVE: CASE EVENT DATE: 20200730
